FAERS Safety Report 5891078-7 (Version None)
Quarter: 2008Q3

REPORT INFORMATION
  Report Type: 
  Country: None (occurrence: None)
  Receive Date: 20080922
  Receipt Date: 20080916
  Transmission Date: 20090109
  Serious: Yes (Hospitalization)
  Sender: FDA-Public Use
  Company Number: US-ABBOTT-08P-163-0476729-00

PATIENT
  Sex: Female
  Weight: 140.74 kg

DRUGS (17)
  1. HUMIRA [Suspect]
     Indication: CROHN'S DISEASE
     Route: 058
     Dates: start: 20070901
  2. HUMIRA [Suspect]
     Route: 058
  3. HUMIRA [Suspect]
     Route: 058
     Dates: end: 20080701
  4. HUMIRA [Suspect]
     Route: 058
     Dates: start: 20080701, end: 20080915
  5. MORPHINE [Concomitant]
     Indication: PAIN
     Route: 048
     Dates: start: 20080701
  6. HYDROMORPHONE HYDROCHLORIDE [Concomitant]
     Indication: PAIN
     Route: 048
     Dates: start: 20080701
  7. PREDNISONE [Concomitant]
     Indication: CROHN'S DISEASE
     Route: 048
     Dates: start: 20070101
  8. MERCAPTOPURINE [Concomitant]
     Indication: CROHN'S DISEASE
     Route: 048
     Dates: start: 20000101
  9. FLUOXETINE HYDROCHLORIDE [Concomitant]
     Indication: CROHN'S DISEASE
     Route: 048
     Dates: start: 20000101
  10. CYCLOBENZAPRINE HCL [Concomitant]
     Indication: BACK DISORDER
     Dosage: 40-60 MG DAILY (10MG 2-3 TIMES DAILY)
     Route: 048
     Dates: start: 19880101
  11. LEVOTHYROXINE SODIUM [Concomitant]
     Indication: HYPOTHYROIDISM
     Route: 048
     Dates: start: 20080301
  12. MAGNESIUM OXIDE [Concomitant]
     Indication: MINERAL SUPPLEMENTATION
     Route: 048
     Dates: start: 20080501
  13. MERIPAX [Concomitant]
     Indication: RESTLESS LEGS SYNDROME
     Route: 048
     Dates: start: 20080701
  14. FAMOTIDINE [Concomitant]
     Indication: GASTROOESOPHAGEAL REFLUX DISEASE
     Route: 048
     Dates: start: 20080701
  15. TRAMADOL HCL [Concomitant]
     Indication: DRUG USE FOR UNKNOWN INDICATION
     Route: 048
     Dates: start: 20080801
  16. ERGOCALCIFEROL [Concomitant]
     Indication: VITAMIN SUPPLEMENTATION
     Route: 048
     Dates: start: 20080701
  17. ALBUTEROL SPIROS [Concomitant]
     Indication: RESPIRATORY DISORDER
     Route: 055
     Dates: start: 19980101

REACTIONS (7)
  - ABDOMINAL ADHESIONS [None]
  - ASTHENIA [None]
  - CROHN'S DISEASE [None]
  - FATIGUE [None]
  - INTESTINAL OBSTRUCTION [None]
  - INTESTINAL STRANGULATION [None]
  - RED BLOOD CELL SEDIMENTATION RATE INCREASED [None]
